FAERS Safety Report 19952080 (Version 2)
Quarter: 2021Q4

REPORT INFORMATION
  Report Type: Spontaneous
  Country: US (occurrence: US)
  Receive Date: 20211013
  Receipt Date: 20211105
  Transmission Date: 20220304
  Serious: Yes (Hospitalization, Other)
  Sender: FDA-Public Use
  Company Number: US-EMERGENT BIOSOLUTIONS,-21000184SP

PATIENT

DRUGS (6)
  1. NARCAN [Suspect]
     Active Substance: NALOXONE HYDROCHLORIDE
     Route: 030
  2. TRESIBA [Concomitant]
     Active Substance: INSULIN DEGLUDEC
     Dosage: UNK
     Dates: start: 20210923, end: 20210923
  3. TRESIBA [Concomitant]
     Active Substance: INSULIN DEGLUDEC
     Dosage: UNK
     Dates: start: 20210923, end: 20210923
  4. OXYCODONE [Concomitant]
     Active Substance: OXYCODONE
  5. PROPRANOLOL [Concomitant]
     Active Substance: PROPRANOLOL HYDROCHLORIDE
  6. PREGABALIN [Concomitant]
     Active Substance: PREGABALIN

REACTIONS (16)
  - Blood glucose decreased [Unknown]
  - Blood glucose increased [Unknown]
  - Insomnia [Unknown]
  - Nervousness [Unknown]
  - Chest pain [Unknown]
  - Heart rate increased [Unknown]
  - Panic attack [Unknown]
  - Emotional distress [Unknown]
  - Gait disturbance [Unknown]
  - Malaise [Unknown]
  - Headache [Unknown]
  - Rhinorrhoea [Unknown]
  - Dry skin [Unknown]
  - Skin wrinkling [Unknown]
  - Product use in unapproved indication [Unknown]
  - Malaise [Unknown]

NARRATIVE: CASE EVENT DATE: 20210924
